FAERS Safety Report 19714275 (Version 2)
Quarter: 2021Q3

REPORT INFORMATION
  Report Type: Report from Study
  Country: US (occurrence: US)
  Receive Date: 20210818
  Receipt Date: 20210922
  Transmission Date: 20211014
  Serious: Yes (Other)
  Sender: FDA-Public Use
  Company Number: US-SUN PHARMACEUTICAL INDUSTRIES LTD-2021R1-307459

PATIENT
  Age: 70 Year
  Sex: Female

DRUGS (2)
  1. BOSENTAN. [Suspect]
     Active Substance: BOSENTAN
     Indication: SYSTEMIC SCLERODERMA
     Dosage: 125 MILLIGRAM, BID
     Route: 048
     Dates: start: 20191029
  2. BOSENTAN. [Suspect]
     Active Substance: BOSENTAN
     Dosage: 125 MILLIGRAM, BID
     Route: 048
     Dates: start: 20191115

REACTIONS (5)
  - Skin infection [Unknown]
  - Choking [Unknown]
  - Dry mouth [Unknown]
  - Staphylococcal skin infection [Unknown]
  - Hypotension [Unknown]

NARRATIVE: CASE EVENT DATE: 20210801
